FAERS Safety Report 9707239 (Version 2)
Quarter: 2013Q4

REPORT INFORMATION
  Report Type: Spontaneous
  Country: US (occurrence: US)
  Receive Date: 20131125
  Receipt Date: 20131205
  Transmission Date: 20140711
  Serious: No
  Sender: FDA-Public Use
  Company Number: US-PFIZER INC-2013333982

PATIENT
  Age: 67 Year
  Sex: Female

DRUGS (1)
  1. PANTOPRAZOLE [Suspect]
     Indication: GASTRITIS
     Dosage: UNK
     Dates: start: 2013

REACTIONS (3)
  - Nasal discomfort [Unknown]
  - Lip dry [Unknown]
  - Stomatitis [Unknown]
